FAERS Safety Report 18549466 (Version 1)
Quarter: 2020Q4

REPORT INFORMATION
  Report Type: Spontaneous
  Country: US (occurrence: US)
  Receive Date: 20201126
  Receipt Date: 20201126
  Transmission Date: 20210114
  Serious: No
  Sender: FDA-Public Use
  Company Number: US-009507513-2011USA013630

PATIENT
  Age: 19 Year
  Sex: Female
  Weight: 51.7 kg

DRUGS (1)
  1. NEXPLANON [Suspect]
     Active Substance: ETONOGESTREL
     Indication: CONTRACEPTION
     Dosage: 1 IMPLANT, RIGHT ARM
     Route: 059
     Dates: start: 20201019, end: 20201111

REACTIONS (5)
  - Device kink [Recovered/Resolved]
  - Device breakage [Recovered/Resolved]
  - Pain in extremity [Unknown]
  - Hypoaesthesia [Unknown]
  - Paraesthesia [Unknown]

NARRATIVE: CASE EVENT DATE: 20201020
